FAERS Safety Report 8392349-5 (Version None)
Quarter: 2012Q2

REPORT INFORMATION
  Report Type: 
  Country: None (occurrence: None)
  Receive Date: 20120529
  Receipt Date: 20120514
  Transmission Date: 20120825
  Serious: Yes (Hospitalization, Other)
  Sender: FDA-Public Use
  Company Number: JP-ROCHE-1069804

PATIENT
  Age: 71 Year
  Sex: Male

DRUGS (2)
  1. RITUXIMAB [Suspect]
     Indication: DIFFUSE LARGE B-CELL LYMPHOMA
     Dosage: 8 CYCLES AND MAITENANCE THERAPY
  2. CEFTRIAXONE [Suspect]
     Indication: PERICARDITIS INFECTIVE
     Route: 042

REACTIONS (2)
  - PERICARDITIS INFECTIVE [None]
  - NEUTROPENIA [None]
